FAERS Safety Report 5266133-5 (Version None)
Quarter: 2007Q1

REPORT INFORMATION
  Report Type: 
  Country: None (occurrence: None)
  Receive Date: 20070308
  Receipt Date: 20070227
  Transmission Date: 20070707
  Serious: Yes (Hospitalization)
  Sender: FDA-Public Use
  Company Number: 2007309459

PATIENT
  Age: 66 Year
  Sex: Male

DRUGS (2)
  1. MINOXIDIL [Suspect]
     Indication: ALOPECIA
     Dosage: 1 ML BID (1 ML, 2 IN 1 D), TOPICAL
     Route: 061
     Dates: start: 20070207, end: 20070201
  2. CORTISONE ACETATE [Concomitant]

REACTIONS (4)
  - BLINDNESS [None]
  - CATARACT OPERATION [None]
  - INTRAOCULAR PRESSURE INCREASED [None]
  - PHOTOPSIA [None]
